FAERS Safety Report 20653164 (Version 1)
Quarter: 2022Q1

REPORT INFORMATION
  Report Type: Spontaneous
  Country: US (occurrence: None)
  Receive Date: 20220330
  Receipt Date: 20220330
  Transmission Date: 20220424
  Serious: Yes (Life-Threatening, Hospitalization, Other)
  Sender: FDA-Public Use
  Company Number: None

PATIENT
  Sex: Female

DRUGS (9)
  1. CLINDAMYCIN [Suspect]
     Active Substance: CLINDAMYCIN
     Indication: Evidence based treatment
     Dosage: ON DAY 2
     Route: 042
  2. CLINDAMYCIN [Suspect]
     Active Substance: CLINDAMYCIN
     Dosage: RESTARTED ON DAY 7
     Route: 042
  3. CEFEPIME [Suspect]
     Active Substance: CEFEPIME HYDROCHLORIDE
     Indication: Evidence based treatment
     Dosage: DAY 1 TO 9
     Route: 042
  4. METRONIDAZOLE [Suspect]
     Active Substance: METRONIDAZOLE
     Indication: Evidence based treatment
     Dosage: DAY 1 TO DAY 4
     Route: 042
  5. METRONIDAZOLE [Suspect]
     Active Substance: METRONIDAZOLE
     Dosage: RESTARTED ON DAY 7
  6. VANCOMYCIN [Suspect]
     Active Substance: VANCOMYCIN
     Indication: Evidence based treatment
     Dosage: DAY 1 TO 9
     Route: 042
  7. SODIUM CHLORIDE [Concomitant]
     Active Substance: SODIUM CHLORIDE
     Route: 042
  8. CEFTRIAXONE [Concomitant]
     Active Substance: CEFTRIAXONE
     Route: 042
  9. PARACETAMOL. [Concomitant]

REACTIONS (7)
  - Metabolic acidosis [Recovering/Resolving]
  - Encephalopathy [Recovered/Resolved]
  - Shock [Recovered/Resolved]
  - Liver injury [Recovering/Resolving]
  - Multiple organ dysfunction syndrome [Recovering/Resolving]
  - Acute kidney injury [Recovering/Resolving]
  - Acute generalised exanthematous pustulosis [Recovering/Resolving]
